FAERS Safety Report 6712898 (Version 3)
Quarter: 2014Q1

REPORT INFORMATION
  Report Type: Spontaneous
  Country: US (occurrence: US)
  Receive Date: 20080729
  Receipt Date: 20140129
  Transmission Date: 20141002
  Serious: Yes (Other)
  Sender: FDA-Public Use
  Company Number: US-JNJFOC-20080705419

PATIENT
  Age: 49 Year
  Sex: Female
  Weight: 84.37 kg

DRUGS (4)
  1. DURAGESIC [Suspect]
     Indication: BACK PAIN
     Route: 062
     Dates: start: 2004
  2. DURAGESIC [Suspect]
     Indication: BACK PAIN
     Route: 062
  3. VICODIN [Concomitant]
     Indication: BREAKTHROUGH PAIN
     Route: 048
     Dates: start: 2004
  4. CATAPRES [Concomitant]
     Indication: HYPERTENSION
     Route: 048
     Dates: end: 2006

REACTIONS (12)
  - Hypertension [Not Recovered/Not Resolved]
  - Weight decreased [Not Recovered/Not Resolved]
  - Sleep apnoea syndrome [Not Recovered/Not Resolved]
  - Application site pain [Recovered/Resolved]
  - Drug dose omission [Unknown]
  - Drug administered at inappropriate site [Not Recovered/Not Resolved]
  - Application site rash [Not Recovered/Not Resolved]
  - Drug withdrawal syndrome [Recovered/Resolved]
  - Product quality issue [Recovered/Resolved]
  - Therapeutic response delayed [Recovered/Resolved]
  - Inappropriate schedule of drug administration [Unknown]
  - Application site pruritus [Recovered/Resolved]
